FAERS Safety Report 14427931 (Version 1)
Quarter: 2018Q1

REPORT INFORMATION
  Report Type: Spontaneous
  Country: US (occurrence: US)
  Receive Date: 20180123
  Receipt Date: 20180123
  Transmission Date: 20180509
  Serious: Yes (Death)
  Sender: FDA-Public Use
  Company Number: US-INSYS THERAPEUTICS, INC-INS201801-000022

PATIENT
  Age: 53 Year
  Sex: Female

DRUGS (4)
  1. FENTANYL. [Suspect]
     Active Substance: FENTANYL
     Indication: PRODUCT USED FOR UNKNOWN INDICATION
  2. DIPHENHYDRAMINE. [Suspect]
     Active Substance: DIPHENHYDRAMINE
  3. HEROIN [Suspect]
     Active Substance: DIAMORPHINE
  4. 2-FURANYL FENTANYL [Suspect]
     Active Substance: FURANYLFENTANYL HYDROCHLORIDE

REACTIONS (3)
  - Pulmonary congestion [None]
  - Pulmonary oedema [None]
  - Toxicity to various agents [Fatal]
